FAERS Safety Report 5896498-2 (Version None)
Quarter: 2008Q3

REPORT INFORMATION
  Report Type: 
  Country: None (occurrence: None)
  Receive Date: 20080924
  Receipt Date: 20070810
  Transmission Date: 20090109
  Serious: Yes (Other)
  Sender: FDA-Public Use
  Company Number: US-BAYER-200712099BWH

PATIENT
  Age: 40 Year
  Sex: Female

DRUGS (1)
  1. AVELOX [Suspect]
     Indication: SINUSITIS
     Route: 048
     Dates: start: 20070601

REACTIONS (8)
  - ANAPHYLACTIC REACTION [None]
  - CHILLS [None]
  - HYPOAESTHESIA [None]
  - OESOPHAGEAL PAIN [None]
  - PAIN [None]
  - PAIN IN JAW [None]
  - PYREXIA [None]
  - URTICARIA [None]
